FAERS Safety Report 21999697 (Version 3)
Quarter: 2023Q4

REPORT INFORMATION
  Report Type: Spontaneous
  Country: CN (occurrence: CN)
  Receive Date: 20230216
  Receipt Date: 20231006
  Transmission Date: 20240110
  Serious: Yes (Life-Threatening, Hospitalization)
  Sender: FDA-Public Use
  Company Number: CN-BAYER-2023A016232

PATIENT
  Age: 73 Year
  Sex: Female
  Weight: 60 kg

DRUGS (1)
  1. ULTRAVIST [Suspect]
     Active Substance: IOPROMIDE
     Indication: Computerised tomogram
     Dosage: 60 ML, ONCE
     Route: 041
     Dates: start: 20230203, end: 20230203

REACTIONS (6)
  - Anaphylactic shock [Recovering/Resolving]
  - Pruritus [None]
  - Blood pressure immeasurable [Recovering/Resolving]
  - Muscle spasms [Recovering/Resolving]
  - Vision blurred [None]
  - Incorrect drug administration rate [None]

NARRATIVE: CASE EVENT DATE: 20230203
